FAERS Safety Report 19252673 (Version 1)
Quarter: 2021Q2

REPORT INFORMATION
  Report Type: Spontaneous
  Country: JP (occurrence: JP)
  Receive Date: 20210513
  Receipt Date: 20210513
  Transmission Date: 20210717
  Serious: Yes (Death, Hospitalization)
  Sender: FDA-Public Use
  Company Number: JP-STRIDES ARCOLAB LIMITED-2021SP005355

PATIENT
  Age: 79 Year
  Sex: Male

DRUGS (15)
  1. PREDNISOLONE. [Suspect]
     Active Substance: PREDNISOLONE
     Indication: POLYMYALGIA RHEUMATICA
     Dosage: 2 MILLIGRAM PER DAY
     Route: 065
  2. CICLESONIDE [Suspect]
     Active Substance: CICLESONIDE
     Indication: COVID-19
     Dosage: 200 MICROGRAM, BID
  3. BETAMETHASONE. [Suspect]
     Active Substance: BETAMETHASONE
     Indication: POLYMYALGIA RHEUMATICA
     Dosage: 0.5 MILLIGRAM PER DAY
     Route: 065
  4. PAZUFLOXACIN [Suspect]
     Active Substance: PAZUFLOXACIN
     Indication: COVID-19
     Dosage: UNK
     Route: 065
  5. METHYLPREDNISOLONE. [Suspect]
     Active Substance: METHYLPREDNISOLONE
     Indication: COVID-19
     Dosage: 1000 MILLIGRAM/DAY
     Route: 065
  6. METHYLPREDNISOLONE. [Suspect]
     Active Substance: METHYLPREDNISOLONE
     Dosage: 70 MILLIGRAM/DAY
     Route: 065
  7. DORIPENEM. [Suspect]
     Active Substance: DORIPENEM
     Indication: COVID-19
     Dosage: UNK
     Route: 065
  8. REMDESIVIR. [Concomitant]
     Active Substance: REMDESIVIR
     Indication: COVID-19
     Dosage: UNK
     Route: 065
  9. DEXAMETHASONE. [Suspect]
     Active Substance: DEXAMETHASONE
     Indication: COVID-19
     Dosage: 6 MILLIGRAM PER DAY
     Route: 065
  10. HEPARIN [Concomitant]
     Active Substance: HEPARIN SODIUM
     Indication: COVID-19
     Dosage: UNK
     Route: 065
  11. METHYLPREDNISOLONE. [Suspect]
     Active Substance: METHYLPREDNISOLONE
     Dosage: 40 MILLIGRAM/DAY
     Route: 065
  12. METHOTREXATE. [Concomitant]
     Active Substance: METHOTREXATE
     Indication: POLYMYALGIA RHEUMATICA
     Dosage: UNK
     Route: 065
  13. IVERMECTIN. [Concomitant]
     Active Substance: IVERMECTIN
     Indication: COVID-19
     Dosage: 9 MILLIGRAM, QD
     Route: 048
  14. METHYLPREDNISOLONE. [Suspect]
     Active Substance: METHYLPREDNISOLONE
     Dosage: 60 MILLIGRAM/DAY
     Route: 065
  15. MEROPENEM. [Suspect]
     Active Substance: MEROPENEM
     Indication: COVID-19
     Dosage: 3 GRAM PER DAY
     Route: 065

REACTIONS (6)
  - Multiple organ dysfunction syndrome [Fatal]
  - Respiratory failure [Fatal]
  - Bronchopulmonary aspergillosis [Unknown]
  - COVID-19 [Unknown]
  - Renal failure [Fatal]
  - Off label use [Unknown]
